FAERS Safety Report 18360822 (Version 2)
Quarter: 2020Q4

REPORT INFORMATION
  Report Type: Spontaneous
  Country: US (occurrence: US)
  Receive Date: 20201008
  Receipt Date: 20201014
  Transmission Date: 20210114
  Serious: No
  Sender: FDA-Public Use
  Company Number: US-PFIZER INC-2019140556

PATIENT
  Age: 73 Year
  Sex: Male
  Weight: 89.8 kg

DRUGS (1)
  1. LYRICA [Suspect]
     Active Substance: PREGABALIN
     Indication: PAIN
     Dosage: 300 MG, 2X/DAY, [TAKE 1 CAPSULE BY MOUTH TWICE DAILY]
     Route: 048

REACTIONS (1)
  - Pain in extremity [Unknown]
